FAERS Safety Report 8915902 (Version 3)
Quarter: 2015Q1

REPORT INFORMATION
  Report Type: Spontaneous
  Country: US (occurrence: US)
  Receive Date: 20121119
  Receipt Date: 20150220
  Transmission Date: 20150721
  Serious: No
  Sender: FDA-Public Use
  Company Number: US-PFIZER INC-2012287136

PATIENT
  Age: 67 Year
  Sex: Male
  Weight: 72.56 kg

DRUGS (10)
  1. LORATADINE. [Concomitant]
     Active Substance: LORATADINE
     Dosage: 10 MG, 1X/DAY
     Route: 048
  2. ATENOLOL. [Concomitant]
     Active Substance: ATENOLOL
     Dosage: 50 MG, 1 TABLET DAILY AS DIRECTED
     Route: 048
  3. DIGOXIN. [Concomitant]
     Active Substance: DIGOXIN
     Dosage: 0.125 MG, 1X/DAY
     Route: 048
  4. ECOTRIN [Concomitant]
     Active Substance: ASPIRIN
     Dosage: 325 MG, 1X/DAY
     Route: 048
  5. LOSARTAN POTASSIUM. [Concomitant]
     Active Substance: LOSARTAN POTASSIUM
     Dosage: 100 MG, 1X/DAY
     Route: 048
  6. DILANTIN [Suspect]
     Active Substance: PHENYTOIN
     Indication: SEIZURE
     Dosage: UNK
     Dates: start: 1999
  7. DILANTIN [Suspect]
     Active Substance: PHENYTOIN
     Dosage: 100MG AM, 160 MG BEDTIME
     Route: 048
     Dates: start: 2000
  8. OMEPRAZOLE. [Concomitant]
     Active Substance: OMEPRAZOLE
     Dosage: 20 MG, 1 CAPSULE TWICE DAILY
     Route: 048
  9. FENOFIBRATE. [Concomitant]
     Active Substance: FENOFIBRATE
     Dosage: 134 MG, 1X/DAY
     Route: 048
  10. ATORVASTATIN CALCIUM. [Concomitant]
     Active Substance: ATORVASTATIN CALCIUM
     Indication: HYPERTENSIVE HEART DISEASE
     Dosage: 40 MG, 1 TABLET DAILY AT BEDTIME
     Route: 048

REACTIONS (3)
  - Nasopharyngitis [Unknown]
  - Malaise [Recovering/Resolving]
  - Sinus disorder [Recovering/Resolving]

NARRATIVE: CASE EVENT DATE: 201312
